FAERS Safety Report 4395012-0 (Version None)
Quarter: 2004Q3

REPORT INFORMATION
  Report Type: 
  Country: None (occurrence: None)
  Receive Date: 20040712
  Receipt Date: 20040521
  Transmission Date: 20050211
  Serious: Yes (Life-Threatening, Hospitalization)
  Sender: FDA-Public Use
  Company Number: PHEH2004US05684

PATIENT
  Age: 50 Year
  Sex: Male
  Weight: 102 kg

DRUGS (9)
  1. ZELNORM [Suspect]
     Indication: IRRITABLE BOWEL SYNDROME
     Dosage: 6 MG, BID
     Route: 048
     Dates: start: 20040301
  2. VERAPAMIL [Concomitant]
  3. DIAZEPAM [Concomitant]
  4. PANTOPRAZOLE [Concomitant]
  5. ZYRTEC [Concomitant]
  6. LIPITOR [Concomitant]
  7. CRESTOR [Concomitant]
  8. ASPIRIN [Concomitant]
  9. CELEBREX [Concomitant]

REACTIONS (4)
  - FEELING ABNORMAL [None]
  - IMPLANTABLE DEFIBRILLATOR INSERTION [None]
  - PALPITATIONS [None]
  - VENTRICULAR TACHYCARDIA [None]
